FAERS Safety Report 4411427-6 (Version None)
Quarter: 2004Q3

REPORT INFORMATION
  Report Type: 
  Country: None (occurrence: None)
  Receive Date: 20040727
  Receipt Date: 20040715
  Transmission Date: 20050211
  Serious: Yes (Hospitalization)
  Sender: FDA-Public Use
  Company Number: 2004-07-0651

PATIENT
  Age: 54 Year
  Sex: Female

DRUGS (2)
  1. CLARITIN [Suspect]
     Dosage: 10 MG ORAL
     Route: 048
     Dates: start: 20040610, end: 20040710
  2. SHINISEIHAITOH [Concomitant]

REACTIONS (3)
  - DYSPNOEA [None]
  - INTERSTITIAL LUNG DISEASE [None]
  - PYREXIA [None]
